FAERS Safety Report 24350407 (Version 1)
Quarter: 2024Q3

REPORT INFORMATION
  Report Type: Spontaneous
  Country: US (occurrence: None)
  Receive Date: 20240922
  Receipt Date: 20240922
  Transmission Date: 20241017
  Serious: Yes (Hospitalization)
  Sender: Public
  Company Number: None

PATIENT
  Sex: Male

DRUGS (2)
  1. LEUKINE [Suspect]
     Active Substance: SARGRAMOSTIM
     Indication: Adrenal gland cancer
     Dosage: 250 MCG DAILY UNDER THE SKIN?
     Route: 042
     Dates: start: 202408
  2. NEULASTA SYRINGE [Concomitant]

REACTIONS (1)
  - Pain [None]
